FAERS Safety Report 25705817 (Version 1)
Quarter: 2025Q3

REPORT INFORMATION
  Report Type: Spontaneous
  Country: US (occurrence: None)
  Receive Date: 20250819
  Receipt Date: 20250819
  Transmission Date: 20251021
  Serious: Yes (Other)
  Sender: FDA-CTU
  Company Number: None

PATIENT
  Age: 61 Year
  Sex: Male
  Weight: 93.15 kg

DRUGS (1)
  1. TAMSULOSIN [Suspect]
     Active Substance: TAMSULOSIN
     Indication: Prostatomegaly
     Dates: start: 20240801, end: 20250816

REACTIONS (4)
  - Dyspnoea [None]
  - Dizziness [None]
  - Therapy cessation [None]
  - Chest pain [None]

NARRATIVE: CASE EVENT DATE: 20250801
